FAERS Safety Report 7588835-8 (Version None)
Quarter: 2011Q3

REPORT INFORMATION
  Report Type: 
  Country: None (occurrence: None)
  Receive Date: 20110705
  Receipt Date: 20110628
  Transmission Date: 20111222
  Serious: No
  Sender: FDA-Public Use
  Company Number: US-JNJFOC-20110612720

PATIENT
  Sex: Male
  Weight: 92.99 kg

DRUGS (2)
  1. DURAGESIC-100 [Suspect]
     Indication: PAIN
     Route: 062
     Dates: start: 20110301
  2. DURAGESIC-100 [Suspect]
     Route: 062
     Dates: start: 20110301

REACTIONS (1)
  - WRONG TECHNIQUE IN DRUG USAGE PROCESS [None]
